FAERS Safety Report 18441009 (Version 2)
Quarter: 2020Q4

REPORT INFORMATION
  Report Type: Report from Study
  Country: IT (occurrence: IT)
  Receive Date: 20201029
  Receipt Date: 20201110
  Transmission Date: 20210114
  Serious: Yes (Other)
  Sender: FDA-Public Use
  Company Number: IT-PFIZER INC-2020418268

PATIENT
  Age: 55 Year
  Sex: Male
  Weight: 70 kg

DRUGS (3)
  1. ATORVASTATIN CALCIUM. [Suspect]
     Active Substance: ATORVASTATIN CALCIUM
     Indication: CARDIOVASCULAR EVENT PROPHYLAXIS
     Dosage: UNK
     Route: 048
     Dates: start: 20200701, end: 20201010
  2. VEKLURY [Suspect]
     Active Substance: REMDESIVIR
     Indication: PNEUMONIA VIRAL
     Dosage: 200 MG, 1X/DAY
     Route: 042
     Dates: start: 20201009, end: 20201013
  3. VEKLURY [Suspect]
     Active Substance: REMDESIVIR
     Dosage: 100 MG
     Route: 042
     Dates: start: 20201010, end: 20201013

REACTIONS (4)
  - Respiratory failure [Unknown]
  - Alanine aminotransferase increased [Not Recovered/Not Resolved]
  - COVID-19 pneumonia [Unknown]
  - Aspartate aminotransferase increased [Not Recovered/Not Resolved]

NARRATIVE: CASE EVENT DATE: 20201010
